FAERS Safety Report 7540088-2 (Version None)
Quarter: 2011Q2

REPORT INFORMATION
  Report Type: 
  Country: None (occurrence: None)
  Receive Date: 20110610
  Receipt Date: 20110601
  Transmission Date: 20111010
  Serious: Yes (Hospitalization)
  Sender: FDA-Public Use
  Company Number: DE-ABBOTT-09P-062-0566900-00

PATIENT
  Sex: Female
  Weight: 111 kg

DRUGS (1)
  1. HUMIRA [Suspect]
     Indication: CROHN'S DISEASE
     Route: 058
     Dates: start: 20080827, end: 20090227

REACTIONS (4)
  - DIARRHOEA [None]
  - DIZZINESS [None]
  - TACHYCARDIA [None]
  - PYREXIA [None]
